FAERS Safety Report 25507783 (Version 1)
Quarter: 2025Q3

REPORT INFORMATION
  Report Type: Report from Study
  Country: CA (occurrence: CA)
  Receive Date: 20250703
  Receipt Date: 20250703
  Transmission Date: 20251020
  Serious: Yes (Other)
  Sender: TAKEDA
  Company Number: CA-TAKEDA-2025TUS058733

PATIENT
  Sex: Male

DRUGS (4)
  1. VEDOLIZUMAB [Suspect]
     Active Substance: VEDOLIZUMAB
     Indication: Crohn^s disease
     Dates: start: 20240801, end: 20250425
  2. PREDNISONE [Concomitant]
     Active Substance: PREDNISONE
  3. VITAMIN D NOS [Concomitant]
     Active Substance: CHOLECALCIFEROL\ERGOCALCIFEROL
     Indication: Anaemia
  4. IRON [Concomitant]
     Active Substance: IRON
     Indication: Anaemia

REACTIONS (1)
  - Crohn^s disease [Not Recovered/Not Resolved]
